FAERS Safety Report 20986439 (Version 1)
Quarter: 2022Q2

REPORT INFORMATION
  Report Type: Spontaneous
  Country: US (occurrence: None)
  Receive Date: 20220617
  Receipt Date: 20220617
  Transmission Date: 20220721
  Serious: No
  Sender: FDA-Public Use
  Company Number: None

PATIENT
  Age: 37 Year
  Sex: Female

DRUGS (1)
  1. ENOXAPARIN SODIUM [Suspect]
     Active Substance: ENOXAPARIN SODIUM
     Indication: Thrombosis prophylaxis
     Dosage: OTHER QUANTITY : 1 INJECTION(S);?FREQUENCY : EVERY 12 HOURS;?
     Route: 058
     Dates: start: 20211015

REACTIONS (4)
  - Device malfunction [None]
  - Device leakage [None]
  - Incorrect dose administered by device [None]
  - Device defective [None]

NARRATIVE: CASE EVENT DATE: 20220617
